FAERS Safety Report 7361315-0 (Version None)
Quarter: 2011Q1

REPORT INFORMATION
  Report Type: 
  Country: None (occurrence: None)
  Receive Date: 20110318
  Receipt Date: 20110308
  Transmission Date: 20110831
  Serious: Yes (Death, Hospitalization)
  Sender: FDA-Public Use
  Company Number: B0677663A

PATIENT
  Age: 79 Year
  Sex: Male
  Weight: 70 kg

DRUGS (4)
  1. HYPERIUM [Concomitant]
     Dosage: 1MG PER DAY
     Route: 048
  2. AMAREL [Concomitant]
     Dosage: 2MG PER DAY
     Route: 048
  3. AVANDIA [Suspect]
     Dosage: 2MG PER DAY
     Route: 048
     Dates: start: 20060511, end: 20100510
  4. PRAVASTATIN SODIUM [Concomitant]
     Dosage: 20MG PER DAY
     Route: 048

REACTIONS (2)
  - MYOCARDIAL INFARCTION [None]
  - ANGINA PECTORIS [None]
